FAERS Safety Report 19747487 (Version 2)
Quarter: 2021Q3

REPORT INFORMATION
  Report Type: Spontaneous
  Country: CN (occurrence: CN)
  Receive Date: 20210825
  Receipt Date: 20210909
  Transmission Date: 20211014
  Serious: Yes (Hospitalization, Other)
  Sender: FDA-Public Use
  Company Number: CN-TAKEDA-2021TUS052787

PATIENT
  Age: 40 Year
  Sex: Male

DRUGS (2)
  1. TRIGLYCERIDES,UNSPECIFIED LENGTH [Suspect]
     Active Substance: TRIGLYCERIDES,UNSPECIFIED LENGTH
     Indication: PRODUCT USED FOR UNKNOWN INDICATION
     Dosage: UNK
     Route: 065
  2. ENTYVIO [Suspect]
     Active Substance: VEDOLIZUMAB
     Indication: CROHN^S DISEASE
     Dosage: UNK
     Route: 042
     Dates: start: 20210809

REACTIONS (2)
  - Extrahepatic biliary tree injury [Recovering/Resolving]
  - Cholestatic liver injury [Unknown]

NARRATIVE: CASE EVENT DATE: 20210817
